FAERS Safety Report 8536890-0 (Version None)
Quarter: 2012Q3

REPORT INFORMATION
  Report Type: 
  Country: None (occurrence: None)
  Receive Date: 20120725
  Receipt Date: 20120709
  Transmission Date: 20120928
  Serious: Yes (Other)
  Sender: FDA-Public Use
  Company Number: FR-GENZYME-CLOF-1002231

PATIENT
  Sex: Female
  Weight: 77 kg

DRUGS (15)
  1. FILGRASTIM [Suspect]
     Indication: PRODUCT USED FOR UNKNOWN INDICATION
     Dosage: 385 MG, UNK
     Route: 042
     Dates: start: 20120605
  2. PLITICIAN [Concomitant]
     Indication: VOMITING
  3. AMBIOSOME [Concomitant]
     Indication: PRODUCT USED FOR UNKNOWN INDICATION
     Dosage: 50 MG, ONCE EVERY 2 DAYS
  4. ACTRAPID [Concomitant]
     Indication: PRODUCT USED FOR UNKNOWN INDICATION
     Dosage: UNK
     Route: 065
  5. MAGNESIUM SULFATE [Concomitant]
     Indication: PRODUCT USED FOR UNKNOWN INDICATION
     Dosage: 1 AMPOULE PER BAG
     Route: 065
  6. ALUMINUM HYDROXIDE AND MAGNESIUM TRISILICATE [Concomitant]
     Indication: PRODUCT USED FOR UNKNOWN INDICATION
     Dosage: 3 G, 1 SACHET X 3 /DAY
     Route: 065
  7. DECAN [Concomitant]
     Indication: PRODUCT USED FOR UNKNOWN INDICATION
     Dosage: 1 AMPOULE
     Route: 065
  8. PLITICIAN [Concomitant]
     Indication: NAUSEA
     Dosage: 1 AMPOULE X 4/DAY
  9. CLOFARABINE [Suspect]
     Indication: ACUTE LEUKAEMIA
     Dosage: 54.5 MG, ON D2-D3-D4-D5 AND D6
     Route: 065
     Dates: start: 20120626, end: 20120630
  10. ACETAMINOPHEN [Concomitant]
     Indication: PRODUCT USED FOR UNKNOWN INDICATION
     Dosage: UNK
     Route: 065
  11. CERNEVIT-12 [Concomitant]
     Indication: PRODUCT USED FOR UNKNOWN INDICATION
     Dosage: 1 AMPOULE
     Route: 065
  12. CYTARABINE [Suspect]
     Indication: ACUTE MYELOID LEUKAEMIA
     Dosage: 1825 MG, ON D1-D2-D3-D4-AND D5
     Route: 042
     Dates: start: 20120625, end: 20120629
  13. MICONAZOLE [Concomitant]
     Indication: PRODUCT USED FOR UNKNOWN INDICATION
     Dosage: UNK X 3 /DAY
  14. TIORFAN [Concomitant]
     Indication: PRODUCT USED FOR UNKNOWN INDICATION
     Dosage: 100 MG, TID
  15. ZOFRAN [Concomitant]
     Indication: VOMITING
     Dosage: 1 AMPOULE X 2/DAY

REACTIONS (10)
  - CONVULSION [None]
  - CHILLS [None]
  - SEPSIS [None]
  - CEREBRAL HYPOPERFUSION [None]
  - LOSS OF CONSCIOUSNESS [None]
  - PYREXIA [None]
  - CONFUSIONAL STATE [None]
  - GAMMA-GLUTAMYLTRANSFERASE INCREASED [None]
  - DIARRHOEA [None]
  - ABDOMINAL PAIN [None]
